FAERS Safety Report 24016366 (Version 1)
Quarter: 2024Q2

REPORT INFORMATION
  Report Type: Other
  Country: GB (occurrence: GB)
  Receive Date: 20240626
  Receipt Date: 20240626
  Transmission Date: 20240716
  Serious: Yes (Hospitalization)
  Sender: FDA-Public Use
  Company Number: None

PATIENT
  Age: 58 Year
  Sex: Male
  Weight: 100 kg

DRUGS (1)
  1. OMNIPAQUE [Suspect]
     Active Substance: IOHEXOL
     Indication: Computerised tomogram heart
     Dosage: 60 ML, TOTAL
     Route: 065
     Dates: start: 20240609, end: 20240609

REACTIONS (8)
  - Sneezing [Recovered/Resolved]
  - Anaphylactic reaction [Unknown]
  - Contrast media reaction [Unknown]
  - Blood pressure decreased [Unknown]
  - Anxiety [Unknown]
  - Agitation [Unknown]
  - Urticaria [Unknown]
  - Pruritus [Recovered/Resolved]

NARRATIVE: CASE EVENT DATE: 20240609
